FAERS Safety Report 18544658 (Version 2)
Quarter: 2020Q4

REPORT INFORMATION
  Report Type: Report from Study
  Country: CA (occurrence: CA)
  Receive Date: 20201125
  Receipt Date: 20201209
  Transmission Date: 20210114
  Serious: Yes (Other)
  Sender: FDA-Public Use
  Company Number: CA-SAMSUNG BIOEPIS-SB-2020-18881

PATIENT
  Sex: Male
  Weight: 84.4 kg

DRUGS (2)
  1. RENFLEXIS [Suspect]
     Active Substance: INFLIXIMAB-ABDA
     Indication: CROHN^S DISEASE
     Route: 042
     Dates: start: 20200228
  2. RAMIPRIL. [Concomitant]
     Active Substance: RAMIPRIL
     Indication: HYPERTENSION
     Dosage: UNKNOWN
     Route: 065

REACTIONS (12)
  - Erythema [Unknown]
  - Respiratory disorder [Unknown]
  - Mucous stools [Unknown]
  - Fatigue [Unknown]
  - Product use issue [Unknown]
  - Rhinorrhoea [Unknown]
  - Neck pain [Unknown]
  - Nausea [Unknown]
  - Suspected COVID-19 [Recovered/Resolved]
  - Diarrhoea [Unknown]
  - Blood pressure decreased [Unknown]
  - Headache [Unknown]
